FAERS Safety Report 7178768-3 (Version None)
Quarter: 2010Q4

REPORT INFORMATION
  Report Type: 
  Country: None (occurrence: None)
  Receive Date: 20101221
  Receipt Date: 20101213
  Transmission Date: 20110411
  Serious: Yes (Other)
  Sender: FDA-Public Use
  Company Number: US-US-EMD SERONO, INC.-7030837

PATIENT
  Sex: Female

DRUGS (6)
  1. REBIF [Suspect]
     Indication: MULTIPLE SCLEROSIS
     Dates: start: 20100401, end: 20100701
  2. REBIF [Suspect]
     Route: 058
     Dates: start: 20101108
  3. ATENOLOL [Concomitant]
     Indication: HYPERTENSION
     Dates: start: 20060824
  4. LEVOTHYROXINE [Concomitant]
     Indication: HYPOTHYROIDISM
     Dates: start: 20060824
  5. CITALOPRAM [Concomitant]
     Indication: DEPRESSION
     Dates: start: 20060824
  6. BUPROPION [Concomitant]
     Indication: DEPRESSION
     Dates: start: 20060824

REACTIONS (2)
  - DEPRESSION [None]
  - SUICIDAL IDEATION [None]
